FAERS Safety Report 11074533 (Version 1)
Quarter: 2015Q2

REPORT INFORMATION
  Report Type: Spontaneous
  Country: CA (occurrence: None)
  Receive Date: 20150427
  Receipt Date: 20150427
  Transmission Date: 20150821
  Serious: Yes (Other)
  Sender: FDA-Public Use
  Company Number: FK201501821

PATIENT

DRUGS (2)
  1. DEXAMETHASONE INJECTION (MANUFACTURER UNKNOWN) (DEXAMETHASONE SODIUM PHOSPHATE) (DEXAMETHASONE SODIUM PHOSPHATE) [Suspect]
     Active Substance: DEXAMETHASONE SODIUM PHOSPHATE
     Indication: PLASMA CELL MYELOMA
     Dosage: 40 MG, DAYS 1-4, 9-12, 17-20 FOR 4 CYCLES, ORAL
     Route: 048
  2. LENALIDOMIDE (LENALIDOMIDE) [Suspect]
     Active Substance: LENALIDOMIDE
     Indication: PLASMA CELL MYELOMA
     Dosage: 25 MG, OF EACH CYCLE (NUMBER OF CYCLES UNSPECIF), ORAL
     Route: 048

REACTIONS (1)
  - Septic shock [None]
